FAERS Safety Report 17053771 (Version 4)
Quarter: 2019Q4

REPORT INFORMATION
  Report Type: Spontaneous
  Country: MX (occurrence: MX)
  Receive Date: 20191120
  Receipt Date: 20191209
  Transmission Date: 20200122
  Serious: Yes (Other)
  Sender: FDA-Public Use
  Company Number: MX-SA-2019SA322199

PATIENT
  Age: 75 Year
  Sex: Female
  Weight: 71 kg

DRUGS (23)
  1. MAGNESIUM VALPROATE [Concomitant]
     Active Substance: VALPROATE MAGNESIUM
     Dosage: UNK
  2. OMEPRAZOLE. [Suspect]
     Active Substance: OMEPRAZOLE
     Indication: PRODUCT USED FOR UNKNOWN INDICATION
     Dosage: UNK UNK, UNK
     Route: 048
  3. FRISIUM [Suspect]
     Active Substance: CLOBAZAM
     Indication: EPILEPSY
     Dosage: 2 MG, QD
     Route: 065
     Dates: start: 2015
  4. RAMIPRIL. [Suspect]
     Active Substance: RAMIPRIL
     Indication: PRODUCT USED FOR UNKNOWN INDICATION
     Dosage: UNK UNK, UNK
     Route: 065
  5. PLAVIX [Suspect]
     Active Substance: CLOPIDOGREL BISULFATE
     Indication: ANTICOAGULANT THERAPY
     Dosage: 1 DF, QD
     Route: 048
     Dates: start: 2015
  6. LEVETIRACETAM. [Suspect]
     Active Substance: LEVETIRACETAM
     Dosage: 100 MG, PM
     Route: 065
  7. PRAMIPEXOLE HYDROCHLORIDE [Suspect]
     Active Substance: PRAMIPEXOLE DIHYDROCHLORIDE
     Indication: EPILEPSY
     Dosage: 2 MG, QD
     Route: 048
     Dates: start: 2015
  8. PANTOPRAZOLE SODIUM. [Suspect]
     Active Substance: PANTOPRAZOLE SODIUM
     Indication: PRODUCT USED FOR UNKNOWN INDICATION
     Dosage: UNK UNK, UNK
     Route: 065
  9. BUPRENORPHINE. [Suspect]
     Active Substance: BUPRENORPHINE
     Indication: BACK PAIN
     Dosage: 0.5 DF, UNK
     Route: 062
  10. SPIRONOLACTONE. [Suspect]
     Active Substance: SPIRONOLACTONE
     Indication: FLUID RETENTION
     Dosage: 50 MG, QD
     Route: 048
  11. MODIODAL [Suspect]
     Active Substance: MODAFINIL
     Indication: DECREASED ACTIVITY
     Dosage: 1 DF, QD
     Route: 048
     Dates: start: 2015
  12. FOLIC ACID;IRON [Concomitant]
     Indication: ANAEMIA
     Dosage: 1 DF, QD
  13. LEVETIRACETAM. [Concomitant]
     Active Substance: LEVETIRACETAM
     Indication: EPILEPSY
     Dosage: 1000 MG, BID
     Dates: start: 2013
  14. LANSOPRAZOLE. [Suspect]
     Active Substance: LANSOPRAZOLE
     Indication: ABDOMINAL PAIN UPPER
  15. LEVETIRACETAM. [Suspect]
     Active Substance: LEVETIRACETAM
     Indication: EPILEPSY
     Dosage: 1000 MG, AM
     Route: 065
  16. NALTREXONE [Suspect]
     Active Substance: NALTREXONE
     Indication: PRODUCT USED FOR UNKNOWN INDICATION
     Dosage: UNK UNK, UNK
     Route: 065
  17. BROMAZEPAM [Suspect]
     Active Substance: BROMAZEPAM
     Indication: EPILEPSY
     Dosage: 1.5 MG, UNK
     Route: 048
  18. MODIVAL [Concomitant]
     Active Substance: CLORAZEPATE DIPOTASSIUM
     Indication: EXERCISE LACK OF
     Dosage: 200 MG, QD
     Route: 048
     Dates: start: 2016
  19. DIOSMIN [DIOSMIN;HESPERIDIN] [Concomitant]
     Dosage: 1 DF, QD
     Route: 048
  20. ESOMEPRAZOLE MAGNESIUM. [Suspect]
     Active Substance: ESOMEPRAZOLE MAGNESIUM
     Indication: GASTRIC ULCER
     Dosage: 0 / 40 MG DAILY
     Route: 048
     Dates: start: 2016
  21. SPIRONOLACTONE. [Suspect]
     Active Substance: SPIRONOLACTONE
     Indication: FLUID RETENTION
     Dosage: 50 MG, QD
     Route: 065
  22. HYDROCHLOROTHIAZIDE/VALSARTAN [Suspect]
     Active Substance: HYDROCHLOROTHIAZIDE\VALSARTAN
     Indication: HYPERTENSION
     Dosage: 1 TABLET A DAY
     Route: 048
  23. LANSOPRAZOLE. [Suspect]
     Active Substance: LANSOPRAZOLE
     Indication: NAUSEA
     Dosage: UNK, PRN (AS NEEDED)
     Route: 048

REACTIONS (11)
  - Gastric ulcer [Not Recovered/Not Resolved]
  - Epilepsy [Unknown]
  - Parkinson^s disease [Unknown]
  - Iodine allergy [Unknown]
  - Meningitis [Unknown]
  - Thrombosis [Recovered/Resolved]
  - Oesophagitis [Not Recovered/Not Resolved]
  - Anaemia [Not Recovered/Not Resolved]
  - Bleeding varicose vein [Unknown]
  - Ulcer [Unknown]
  - Vein rupture [Unknown]

NARRATIVE: CASE EVENT DATE: 2015
